FAERS Safety Report 24086423 (Version 2)
Quarter: 2024Q3

REPORT INFORMATION
  Report Type: Spontaneous
  Country: US (occurrence: None)
  Receive Date: 20240712
  Receipt Date: 20240828
  Transmission Date: 20241016
  Serious: No
  Sender: ASTRAZENECA
  Company Number: 2024A157479

PATIENT
  Sex: Female

DRUGS (4)
  1. SAPHNELO [Suspect]
     Active Substance: ANIFROLUMAB-FNIA
     Dates: start: 202404
  2. MULTI-VITAMINS [Concomitant]
  3. OMEGA 3 [Concomitant]
     Active Substance: CAPSAICIN
  4. CALCIUM [Concomitant]
     Active Substance: CALCIUM

REACTIONS (3)
  - Energy increased [Unknown]
  - Fatigue [Unknown]
  - Pain [Unknown]
